FAERS Safety Report 9914517 (Version 2)
Quarter: 2014Q1

REPORT INFORMATION
  Report Type: Spontaneous
  Country: US (occurrence: None)
  Receive Date: 20140218
  Receipt Date: 20140225
  Transmission Date: 20141002
  Serious: Yes (Hospitalization)
  Sender: FDA-Public Use
  Company Number: CA-ALSI-201400014

PATIENT
  Age: 70 Year
  Sex: Female

DRUGS (1)
  1. OXYGEN [Suspect]
     Indication: CHRONIC OBSTRUCTIVE PULMONARY DISEASE
     Dosage: 4 I ONCE A MINUTE RESPIRATORY
     Dates: start: 20131118

REACTIONS (5)
  - Thermal burn [None]
  - Intentional drug misuse [None]
  - Accident [None]
  - Tobacco user [None]
  - Device damage [None]
